FAERS Safety Report 5960319-X (Version None)
Quarter: 2008Q4

REPORT INFORMATION
  Report Type: 
  Country: None (occurrence: None)
  Receive Date: 20081120
  Receipt Date: 20081118
  Transmission Date: 20090506
  Serious: Yes (Death)
  Sender: FDA-Public Use
  Company Number: JP-SANOFI-SYNTHELABO-F01200801745

PATIENT
  Sex: Male
  Weight: 66.2 kg

DRUGS (8)
  1. RESTAMIN [Concomitant]
     Dosage: UNK
     Dates: start: 20071214, end: 20080229
  2. KYTRIL [Concomitant]
     Dosage: UNK
     Dates: start: 20071214, end: 20080229
  3. ZANTAC [Concomitant]
     Dosage: UNK
     Dates: start: 20071214, end: 20080229
  4. DECADRON [Concomitant]
     Dosage: UNK
     Dates: start: 20071214, end: 20080229
  5. BEVACIZUMAB [Suspect]
     Route: 041
     Dates: start: 20080104, end: 20080104
  6. LEVOFOLINATE [Suspect]
     Route: 041
     Dates: start: 20080104, end: 20080104
  7. FLUOROURACIL [Suspect]
     Dosage: PER 3 DAYS
     Route: 042
     Dates: start: 20080104, end: 20080106
  8. ELPLAT [Suspect]
     Indication: RECTAL CANCER RECURRENT
     Route: 041
     Dates: start: 20080104, end: 20080104

REACTIONS (1)
  - DISEASE PROGRESSION [None]
